FAERS Safety Report 6644964-4 (Version None)
Quarter: 2010Q1

REPORT INFORMATION
  Report Type: 
  Country: None (occurrence: None)
  Receive Date: 20100322
  Receipt Date: 20100310
  Transmission Date: 20100710
  Serious: Yes (Other)
  Sender: FDA-Public Use
  Company Number: PHHY2010MX14745

PATIENT
  Age: 58 Year
  Sex: Female

DRUGS (5)
  1. RASILEZ [Suspect]
     Indication: HYPERTENSION
     Dosage: 1 TABLET (150 MG) DAILY
     Route: 048
  2. LOSARTAN POTASSIUM [Concomitant]
  3. METOPROLOL TARTRATE [Concomitant]
  4. PAROXETINE HCL [Concomitant]
  5. CARBAMAZEPINE [Concomitant]

REACTIONS (3)
  - BLOOD CHOLESTEROL INCREASED [None]
  - BLOOD PRESSURE INCREASED [None]
  - DIABETES MELLITUS [None]
